FAERS Safety Report 25409518 (Version 1)
Quarter: 2025Q2

REPORT INFORMATION
  Report Type: Spontaneous
  Country: US (occurrence: US)
  Receive Date: 20250607
  Receipt Date: 20250607
  Transmission Date: 20250716
  Serious: No
  Sender: BRAEBURN PHARMACEUTICALS
  Company Number: US-BRAEBURN PHARMACEUTICALS-US-BRA-25-000302

PATIENT

DRUGS (2)
  1. BRIXADI [Suspect]
     Active Substance: BUPRENORPHINE
     Indication: Drug dependence
     Dosage: 24 MILLIGRAM, WEEKLY
     Route: 058
  2. BRIXADI [Suspect]
     Active Substance: BUPRENORPHINE
     Dosage: 24 MILLIGRAM, BIWEEKLY (UNDER THE SKIN OF THE GLUTE)
     Route: 058

REACTIONS (1)
  - Inappropriate schedule of product administration [Unknown]
